FAERS Safety Report 5214473-8 (Version None)
Quarter: 2006Q4

REPORT INFORMATION
  Report Type: 
  Country: None (occurrence: None)
  Receive Date: 20061107
  Receipt Date: 20060801
  Transmission Date: 20070319
  Serious: No
  Sender: FDA-Public Use
  Company Number: 200614855BWH

PATIENT
  Age: 61 Year
  Sex: Male

DRUGS (7)
  1. LEVITRA [Suspect]
     Dosage: 10 MG, ONCE, ORAL; 20 MG Q2WK, ORAL
     Route: 048
     Dates: start: 20050101
  2. LEVITRA [Suspect]
     Dosage: 10 MG, ONCE, ORAL; 20 MG Q2WK, ORAL
     Route: 048
     Dates: start: 20050101
  3. LEVITRA [Suspect]
     Dosage: 10 MG, ONCE, ORAL; 20 MG Q2WK, ORAL
     Route: 048
     Dates: start: 20050701
  4. LEVITRA [Suspect]
     Dosage: 10 MG, ONCE, ORAL; 20 MG Q2WK, ORAL
     Route: 048
     Dates: start: 20060101
  5. NORVASC [Concomitant]
  6. ATENOLOL [Concomitant]
  7. ZESTORETIC [Concomitant]

REACTIONS (2)
  - ERECTILE DYSFUNCTION [None]
  - OCULAR HYPERAEMIA [None]
